FAERS Safety Report 7687464-5 (Version None)
Quarter: 2011Q3

REPORT INFORMATION
  Report Type: 
  Country: None (occurrence: None)
  Receive Date: 20110816
  Receipt Date: 20110329
  Transmission Date: 20111222
  Serious: Yes (Hospitalization, Other)
  Sender: FDA-Public Use
  Company Number: FR-BRISTOL-MYERS SQUIBB COMPANY-13688031

PATIENT
  Age: 66 Year
  Sex: Male

DRUGS (5)
  1. ONDANSETRON [Concomitant]
     Dates: start: 20070122, end: 20070128
  2. ACETAMINOPHEN [Concomitant]
     Dates: start: 20070127, end: 20070129
  3. METOCLOPRAMIDE [Concomitant]
     Dates: start: 20070124, end: 20070126
  4. MDX-010 [Suspect]
     Indication: MALIGNANT MELANOMA
     Route: 042
     Dates: start: 20070122, end: 20070122
  5. DACARBAZINE [Suspect]
     Indication: MALIGNANT MELANOMA
     Route: 042
     Dates: start: 20070122, end: 20070122

REACTIONS (2)
  - ASPARTATE AMINOTRANSFERASE INCREASED [None]
  - ALANINE AMINOTRANSFERASE INCREASED [None]
